FAERS Safety Report 12707125 (Version 1)
Quarter: 2016Q3

REPORT INFORMATION
  Report Type: Spontaneous
  Country: BR (occurrence: BR)
  Receive Date: 20160901
  Receipt Date: 20160901
  Transmission Date: 20161109
  Serious: Yes (Other)
  Sender: FDA-Public Use
  Company Number: BR-SA-2016SA146374

PATIENT
  Sex: Female

DRUGS (1)
  1. CLEXANE [Suspect]
     Active Substance: ENOXAPARIN SODIUM
     Indication: HYPERCOAGULATION
     Route: 051

REACTIONS (6)
  - Exposure during pregnancy [Unknown]
  - Gestational diabetes [Unknown]
  - Injection site swelling [Unknown]
  - Drug ineffective [Unknown]
  - Thrombosis [Unknown]
  - Migraine [Unknown]
